FAERS Safety Report 20296296 (Version 1)
Quarter: 2022Q1

REPORT INFORMATION
  Report Type: Spontaneous
  Country: ES (occurrence: ES)
  Receive Date: 20220105
  Receipt Date: 20220105
  Transmission Date: 20220424
  Serious: Yes (Life-Threatening)
  Sender: FDA-Public Use
  Company Number: ES-AEMPS-1065685

PATIENT
  Age: 32 Year
  Sex: Female

DRUGS (5)
  1. PREGABALIN [Interacting]
     Active Substance: PREGABALIN
     Indication: Product used for unknown indication
     Dosage: 625 MILLIGRAM, IN TOTAL
     Route: 048
     Dates: start: 20200929, end: 20200929
  2. TRAZODONE HYDROCHLORIDE [Interacting]
     Active Substance: TRAZODONE HYDROCHLORIDE
     Indication: Product used for unknown indication
     Dosage: 3 GRAM, 30 TABLETS OF 100 MG; IN TOTAL
     Route: 048
     Dates: start: 20200929, end: 20200929
  3. FENTANYL [Interacting]
     Active Substance: FENTANYL
     Indication: Product used for unknown indication
     Dosage: 2 PARCHES DE FENTANILO, UNK ; IN TOTAL
     Route: 062
     Dates: start: 20200929, end: 20200929
  4. LORAZEPAM [Interacting]
     Active Substance: LORAZEPAM
     Indication: Product used for unknown indication
     Dosage: 60 MILLIGRAM, IN TOTAL
     Route: 048
     Dates: start: 20200929, end: 20200929
  5. AMITRIPTYLINE [Interacting]
     Active Substance: AMITRIPTYLINE
     Indication: Product used for unknown indication
     Dosage: 625 MILLIGRAM, 25 COMP OF 25 MG; IN TOTAL
     Route: 048
     Dates: start: 20200929, end: 20200929

REACTIONS (3)
  - Acute respiratory failure [Recovered/Resolved]
  - Depressed level of consciousness [Recovered/Resolved]
  - Suicide attempt [Unknown]

NARRATIVE: CASE EVENT DATE: 20200929
